FAERS Safety Report 8044167-5 (Version None)
Quarter: 2012Q1

REPORT INFORMATION
  Report Type: 
  Country: None (occurrence: None)
  Receive Date: 20120113
  Receipt Date: 20120106
  Transmission Date: 20120608
  Serious: Yes (Hospitalization)
  Sender: FDA-Public Use
  Company Number: JP-BRISTOL-MYERS SQUIBB COMPANY-16210783

PATIENT
  Age: 76 Year
  Sex: Male

DRUGS (16)
  1. SPIRONOLACTONE [Concomitant]
     Indication: MYOCARDIAL INFARCTION
     Route: 048
  2. GOSHAJINKIGAN [Concomitant]
     Indication: DYSURIA
     Route: 048
  3. PLAVIX [Suspect]
     Indication: MYOCARDIAL INFARCTION
     Route: 048
     Dates: end: 20110929
  4. MUCOSTA [Concomitant]
     Indication: GASTRITIS
     Route: 048
  5. LIVALO [Concomitant]
     Indication: HYPERLIPIDAEMIA
     Route: 048
  6. CARVEDILOL [Concomitant]
     Indication: MYOCARDIAL INFARCTION
     Route: 048
  7. LEVOTHYROXINE SODIUM [Concomitant]
     Indication: HYPOTHYROIDISM
  8. ASPIRIN [Suspect]
     Indication: MYOCARDIAL INFARCTION
     Route: 048
     Dates: end: 20110929
  9. LASIX [Concomitant]
     Indication: MYOCARDIAL INFARCTION
     Route: 048
  10. INSULIN [Concomitant]
     Route: 058
     Dates: start: 20110929
  11. NOVORAPID [Concomitant]
     Indication: DIABETES MELLITUS
     Dosage: NOVORAPID 50 MIX 1DF:50 UNITS NOS
     Route: 058
     Dates: end: 20110929
  12. METFORMIN HCL [Suspect]
     Indication: TYPE 2 DIABETES MELLITUS
     Dosage: 750MG
     Route: 048
     Dates: end: 20110929
  13. WARFARIN SODIUM [Suspect]
     Indication: PROSTHETIC VESSEL IMPLANTATION
     Route: 048
     Dates: end: 20110929
  14. ZETIA [Concomitant]
     Indication: HYPERLIPIDAEMIA
     Route: 048
  15. MAGMITT [Concomitant]
     Indication: CONSTIPATION
     Route: 048
  16. RABEPRAZOLE SODIUM [Concomitant]
     Indication: GASTRITIS
     Route: 048

REACTIONS (3)
  - HAEMOGLOBIN DECREASED [None]
  - HAEMATOMA [None]
  - COAGULATION FACTOR XIII LEVEL DECREASED [None]
